FAERS Safety Report 10019226 (Version 1)
Quarter: 2014Q1

REPORT INFORMATION
  Report Type: Spontaneous
  Country: US (occurrence: None)
  Receive Date: 20140314
  Receipt Date: 20140314
  Transmission Date: 20141002
  Serious: No
  Sender: FDA-Public Use
  Company Number: None

PATIENT
  Sex: 0

DRUGS (2)
  1. ACETYLCYSTEINE [Suspect]
     Dosage: INHALATION
     Route: 048
  2. ACETYLCYSTEINE [Suspect]
     Dosage: INHALATION
     Route: 048

REACTIONS (2)
  - Product dosage form confusion [None]
  - Medication error [None]
